FAERS Safety Report 21374257 (Version 1)
Quarter: 2022Q3

REPORT INFORMATION
  Report Type: Spontaneous
  Country: US (occurrence: US)
  Receive Date: 20220926
  Receipt Date: 20220926
  Transmission Date: 20221026
  Serious: Yes (Hospitalization, Other)
  Sender: FDA-Public Use
  Company Number: US-009507513-1301USA009744

PATIENT
  Sex: Female

DRUGS (21)
  1. FOSAMAX [Suspect]
     Active Substance: ALENDRONATE SODIUM
     Indication: Osteopenia
     Dosage: 70 MG, QW
     Route: 048
     Dates: start: 20021227, end: 20090109
  2. ALENDRONATE SODIUM [Suspect]
     Active Substance: ALENDRONATE SODIUM
     Indication: Osteopenia
     Dosage: 70 MG, QW
     Route: 048
     Dates: start: 20100323, end: 20101212
  3. ACTONEL [Concomitant]
     Active Substance: RISEDRONATE SODIUM
     Indication: Osteopenia
     Dosage: UNK
     Route: 048
     Dates: start: 200404
  4. STRONTIUM [Concomitant]
     Active Substance: STRONTIUM
     Dosage: 250 MILLIGRAM, BID
     Route: 048
     Dates: start: 1972
  5. CYSTEINE [Concomitant]
     Active Substance: CYSTEINE
     Dosage: 500 MG, QD
     Route: 048
     Dates: start: 1972
  6. VITIS VINIFERA SEED [Concomitant]
     Active Substance: VITIS VINIFERA SEED
     Dosage: 120 MG, QD
     Dates: start: 1972
  7. NATTOKINASE [Concomitant]
     Active Substance: NATTOKINASE
     Dosage: 100 MG, QD
     Route: 048
     Dates: start: 1972
  8. MENATETRENONE [Concomitant]
     Active Substance: MENATETRENONE
     Dosage: 100 DF, QD
     Route: 048
     Dates: start: 1972
  9. FOLIC ACID [Concomitant]
     Active Substance: FOLIC ACID
     Dosage: 800 DF, QD
     Route: 048
     Dates: start: 1972
  10. PYRIDOXINE [Concomitant]
     Active Substance: PYRIDOXINE
     Dosage: 500 MILLIGRAM, QD
     Route: 048
     Dates: start: 1972
  11. DIETARY SUPPLEMENT\RESVERATROL [Concomitant]
     Active Substance: DIETARY SUPPLEMENT\RESVERATROL
     Dosage: 25/100/50/25 MG, QD
  12. RETINOL [Concomitant]
     Active Substance: RETINOL
     Dosage: 10000 INTERNATIONAL UNIT, QD
     Dates: start: 1972
  13. CHOLECALCIFEROL [Concomitant]
     Active Substance: CHOLECALCIFEROL
     Dosage: 5000 INTERNATIONAL UNIT, QD
     Dates: start: 1972
  14. TOCOPHEROL [Concomitant]
     Active Substance: TOCOPHEROL
     Dosage: 250 MG, QD
     Dates: start: 1972
  15. PHOSPHATIDYL SERINE [Concomitant]
     Active Substance: PHOSPHATIDYL SERINE
     Dosage: 100 MILLIGRAM, BID
     Dates: start: 1972
  16. UBIDECARENONE [Concomitant]
     Active Substance: UBIDECARENONE
     Dosage: 60 MG, QD
     Dates: start: 1972
  17. OMEGA-3-ACID ETHYL ESTERS [Concomitant]
     Active Substance: OMEGA-3-ACID ETHYL ESTERS
     Dosage: 750 (500EPA/25DHA) MG, QD
     Dates: start: 1972
  18. SELENIUM [Concomitant]
     Active Substance: SELENIUM
     Dosage: 100 DF, QD
     Dates: start: 1972
  19. NICOTINIC ACID [Concomitant]
     Active Substance: NIACIN
     Dosage: 500 MG, QD
     Dates: start: 1972
  20. LEVOCARNITINE [Concomitant]
     Active Substance: LEVOCARNITINE
     Dosage: UNK
     Dates: start: 1972
  21. CALCIUM [Concomitant]
     Active Substance: CALCIUM
     Dosage: CA 300 MG/MG 300MG D3 1000IU, QD
     Dates: start: 1972

REACTIONS (14)
  - Open reduction of fracture [Unknown]
  - Cataract operation [Unknown]
  - Necrosis [Unknown]
  - Mitral valve incompetence [Unknown]
  - Femur fracture [Unknown]
  - Fall [Unknown]
  - Left ventricular hypertrophy [Unknown]
  - QRS axis abnormal [Unknown]
  - Aortic valve sclerosis [Unknown]
  - Blood sodium decreased [Unknown]
  - Peripheral venous disease [Not Recovered/Not Resolved]
  - Obstructive sleep apnoea syndrome [Unknown]
  - Adjustment disorder [Not Recovered/Not Resolved]
  - Anxiety [Unknown]

NARRATIVE: CASE EVENT DATE: 20101231
